FAERS Safety Report 13052380 (Version 1)
Quarter: 2016Q4

REPORT INFORMATION
  Report Type: Spontaneous
  Country: US (occurrence: US)
  Receive Date: 20161221
  Receipt Date: 20161221
  Transmission Date: 20170207
  Serious: No
  Sender: FDA-Public Use
  Company Number: US-ACTELION-A-NJ2016-147241

PATIENT
  Age: 48 Year
  Sex: Female

DRUGS (2)
  1. OPSUMIT [Suspect]
     Active Substance: MACITENTAN
     Indication: PULMONARY HYPERTENSION
     Dosage: 10 MG, UNK
     Route: 048
     Dates: start: 20161208
  2. ADEMPAS [Concomitant]
     Active Substance: RIOCIGUAT

REACTIONS (3)
  - Blood pressure abnormal [Unknown]
  - Fatigue [Unknown]
  - Erythema [Unknown]
